FAERS Safety Report 13563495 (Version 1)
Quarter: 2017Q2

REPORT INFORMATION
  Report Type: Spontaneous
  Country: US (occurrence: US)
  Receive Date: 20170519
  Receipt Date: 20170519
  Transmission Date: 20170830
  Serious: Yes (Disabling)
  Sender: FDA-Public Use
  Company Number: None

PATIENT
  Age: 81 Year
  Sex: Female
  Weight: 67.5 kg

DRUGS (5)
  1. TRADAZONE [Concomitant]
  2. LEVAQUIN [Suspect]
     Active Substance: LEVOFLOXACIN
     Indication: PNEUMONIA
     Dosage: ?          QUANTITY:10 CAPSULE(S);?
     Route: 048
     Dates: start: 20170117, end: 20170124
  3. GLUCOSAMINE [Concomitant]
     Active Substance: GLUCOSAMINE
  4. HYDROCODONE [Concomitant]
     Active Substance: HYDROCODONE
  5. ZOLPIDEM [Concomitant]
     Active Substance: ZOLPIDEM\ZOLPIDEM TARTRATE

REACTIONS (12)
  - Musculoskeletal pain [None]
  - Feeling hot [None]
  - Asthenia [None]
  - Lethargy [None]
  - Loss of personal independence in daily activities [None]
  - Musculoskeletal disorder [None]
  - Malaise [None]
  - Listless [None]
  - Arthralgia [None]
  - Dizziness [None]
  - Movement disorder [None]
  - Syncope [None]

NARRATIVE: CASE EVENT DATE: 20170119
